FAERS Safety Report 5174412-5 (Version None)
Quarter: 2006Q4

REPORT INFORMATION
  Report Type: 
  Country: None (occurrence: None)
  Receive Date: 20061214
  Receipt Date: 20061205
  Transmission Date: 20070319
  Serious: Yes (Hospitalization)
  Sender: FDA-Public Use
  Company Number: FR-SANOFI-SYNTHELABO-A02200603145

PATIENT
  Age: 57 Year
  Sex: Female

DRUGS (2)
  1. TIMOPTIC [Suspect]
     Indication: OPEN ANGLE GLAUCOMA
     Dosage: UNK
     Route: 031
     Dates: end: 20060710
  2. KERLONE [Suspect]
     Indication: ESSENTIAL HYPERTENSION
     Dosage: UNK
     Route: 048
     Dates: end: 20060710

REACTIONS (1)
  - OPTIC NEURITIS [None]
